FAERS Safety Report 8921582 (Version 2)
Quarter: 2013Q1

REPORT INFORMATION
  Report Type: Spontaneous
  Country: US (occurrence: US)
  Receive Date: 20121122
  Receipt Date: 20130204
  Transmission Date: 20140127
  Serious: Yes (Other)
  Sender: FDA-Public Use
  Company Number: PHEH2012US022676

PATIENT
  Sex: Female

DRUGS (4)
  1. DIOVAN HCT [Suspect]
  2. SYNTHROID [Concomitant]
  3. CRESTOR [Concomitant]
  4. KOMBIGLYZE [Concomitant]

REACTIONS (1)
  - Diabetes mellitus [Unknown]
